FAERS Safety Report 12998506 (Version 1)
Quarter: 2016Q4

REPORT INFORMATION
  Report Type: Spontaneous
  Country: FR (occurrence: FR)
  Receive Date: 20161205
  Receipt Date: 20161205
  Transmission Date: 20170207
  Serious: Yes (Hospitalization)
  Sender: FDA-Public Use
  Company Number: FR-PFIZER INC-2016553093

PATIENT
  Age: 56 Year
  Sex: Female
  Weight: 55 kg

DRUGS (24)
  1. TACROLIMUS. [Suspect]
     Active Substance: TACROLIMUS
     Indication: TRANSPLANT
     Dosage: 0.5 MG, 2X/DAY
     Route: 048
     Dates: start: 201510, end: 20161001
  2. CELLCEPT [Concomitant]
     Active Substance: MYCOPHENOLATE MOFETIL\MYCOPHENOLATE MOFETIL HYDROCHLORIDE
     Dosage: 750 MG, 2X/DAY
  3. LANSOPRAZOLE. [Concomitant]
     Active Substance: LANSOPRAZOLE
     Dosage: 30 MG, 2X/DAY
  4. MUCOMYST /00082801/ [Concomitant]
     Dosage: 1 DF, 1X/DAY
  5. ALENDRONATE [Concomitant]
     Active Substance: ALENDRONATE SODIUM
     Dosage: 70 MG, WEEKLY (ON SUNDAYS)
  6. CALCIUM [Concomitant]
     Active Substance: CALCIUM
     Dosage: 1 G, 2X/DAY
  7. BACTRIM [Concomitant]
     Active Substance: SULFAMETHOXAZOLE\TRIMETHOPRIM
     Dosage: 800 MG, THRICE WEEKLY (MONDAYS, WEDNESDAYS AND FRIDAYS)
  8. ZECLAR [Concomitant]
     Active Substance: CLARITHROMYCIN
     Dosage: 250 MG, 1X/DAY
  9. LEDERFOLINE [Concomitant]
     Active Substance: LEUCOVORIN CALCIUM
     Dosage: 25 MG, THRICE WEEKLY (TUESDAYS, THURSDAYS AND SATURDAYS)
  10. CHOLECALCIFEROL [Concomitant]
     Active Substance: CHOLECALCIFEROL
     Dosage: 1 DF, MONTHLY
  11. SINGULAIR [Concomitant]
     Active Substance: MONTELUKAST SODIUM
     Dosage: 10 MG, 1X/DAY
  12. COLIMYCINE /00013206/ [Concomitant]
     Dosage: 2 MILLION IU, 2X/DAY
  13. VALGANCICLOVIR. [Concomitant]
     Active Substance: VALGANCICLOVIR
     Dosage: 900 MG, DAILY
  14. DEBRIDAT /00465202/ [Concomitant]
     Active Substance: TRIMEBUTINE
     Dosage: 100 MG, 3X/DAY
  15. BRICANYL [Concomitant]
     Active Substance: TERBUTALINE SULFATE
     Dosage: 5 MG, 4X/DAY
  16. PREDNISONE. [Concomitant]
     Active Substance: PREDNISONE
     Dosage: 10 MG, 1X/DAY
  17. TARDYFERON [Concomitant]
     Active Substance: FERROUS SULFATE
     Dosage: 160 MG, DAILY
  18. MAGNESIUM [Concomitant]
     Active Substance: MAGNESIUM
     Dosage: 2 DF, 2X/DAY
  19. TACROLIMUS. [Suspect]
     Active Substance: TACROLIMUS
     Dosage: AT DECREASED POSOLOGY
     Route: 048
     Dates: start: 20161002, end: 2016
  20. DOMPERIDONE [Concomitant]
     Active Substance: DOMPERIDONE
     Dosage: 10 MG, 3X/DAY
  21. ARANESP [Concomitant]
     Active Substance: DARBEPOETIN ALFA
     Dosage: 300 UG, WEEKLY (ON FRIDAYS)
     Route: 058
  22. VFEND [Suspect]
     Active Substance: VORICONAZOLE
     Indication: INFECTION
     Dosage: 150 MG, 2X/DAY
     Route: 048
     Dates: end: 20161002
  23. IMMUNOGLOBULINS [Concomitant]
     Active Substance: HUMAN IMMUNOGLOBULIN G
     Indication: TRANSPLANT REJECTION
  24. VORICONAZOLE. [Concomitant]
     Active Substance: VORICONAZOLE
     Dosage: 150 MG, 2X/DAY

REACTIONS (2)
  - Reversible cerebral vasoconstriction syndrome [Recovering/Resolving]
  - Posterior reversible encephalopathy syndrome [Recovering/Resolving]

NARRATIVE: CASE EVENT DATE: 20161001
